FAERS Safety Report 17153087 (Version 1)
Quarter: 2019Q4

REPORT INFORMATION
  Report Type: Spontaneous
  Country: US (occurrence: US)
  Receive Date: 20191213
  Receipt Date: 20191213
  Transmission Date: 20200122
  Serious: Yes (Hospitalization, Disabling, Congenital Anomaly, Other)
  Sender: FDA-Public Use
  Company Number: US-TRIS PHARMA, INC.-19US008658

PATIENT

DRUGS (4)
  1. BUPRENORPHINE. [Suspect]
     Active Substance: BUPRENORPHINE
     Indication: PRODUCT USED FOR UNKNOWN INDICATION
     Route: 064
  2. HEROIN [Suspect]
     Active Substance: DIAMORPHINE
     Indication: PRODUCT USED FOR UNKNOWN INDICATION
     Route: 064
  3. BENZODIAZEPINE DERIVATIVES [Suspect]
     Active Substance: BENZODIAZEPINE
     Indication: PRODUCT USED FOR UNKNOWN INDICATION
     Route: 064
  4. GABAPENTIN. [Suspect]
     Active Substance: GABAPENTIN
     Indication: PRODUCT USED FOR UNKNOWN INDICATION
     Route: 064

REACTIONS (22)
  - Small for dates baby [Unknown]
  - High arched palate [Unknown]
  - Premature baby [Unknown]
  - Congenital multiplex arthrogryposis [Unknown]
  - Anal skin tags [Unknown]
  - Blindness [Unknown]
  - Drug withdrawal syndrome neonatal [Unknown]
  - Infantile vomiting [Unknown]
  - Hydronephrosis [Unknown]
  - Low set ears [Unknown]
  - Feeding intolerance [Unknown]
  - Neonatal infection [Unknown]
  - Gastrooesophageal reflux disease [Unknown]
  - Micrognathia [Unknown]
  - Developmental hip dysplasia [Unknown]
  - Hypoxic-ischaemic encephalopathy [Unknown]
  - Congenital brain damage [Unknown]
  - Sepsis neonatal [Unknown]
  - Foetal exposure during pregnancy [Recovered/Resolved]
  - Neonatal respiratory distress [Unknown]
  - Neonatal deafness [Unknown]
  - Joint hyperextension [Unknown]
